FAERS Safety Report 17238107 (Version 1)
Quarter: 2020Q1

REPORT INFORMATION
  Report Type: Spontaneous
  Country: US (occurrence: US)
  Receive Date: 20200106
  Receipt Date: 20200106
  Transmission Date: 20200409
  Serious: No
  Sender: FDA-Public Use
  Company Number: US-PACIRA-201900273

PATIENT
  Sex: Male

DRUGS (2)
  1. ROPIVACAINE. [Suspect]
     Active Substance: ROPIVACAINE HYDROCHLORIDE
     Indication: NERVE BLOCK
  2. EXPAREL [Suspect]
     Active Substance: BUPIVACAINE
     Indication: NERVE BLOCK
     Dates: start: 20190813, end: 20190813

REACTIONS (2)
  - Labelled drug-drug interaction medication error [Not Recovered/Not Resolved]
  - No adverse event [Unknown]
